FAERS Safety Report 10098874 (Version 1)
Quarter: 2014Q2

REPORT INFORMATION
  Report Type: Spontaneous
  Country: US (occurrence: US)
  Receive Date: 20140423
  Receipt Date: 20140423
  Transmission Date: 20141212
  Serious: No
  Sender: FDA-Public Use
  Company Number: US-NOVEN-14US008973

PATIENT
  Sex: Female

DRUGS (2)
  1. BRISDELLE [Suspect]
     Indication: HOT FLUSH
     Dosage: 7.5 MG, UNK
     Route: 048
  2. BRISDELLE [Suspect]
     Indication: NIGHT SWEATS

REACTIONS (1)
  - Insomnia [Recovered/Resolved]
